FAERS Safety Report 8232617-0 (Version None)
Quarter: 2012Q1

REPORT INFORMATION
  Report Type: 
  Country: None (occurrence: None)
  Receive Date: 20120323
  Receipt Date: 20120308
  Transmission Date: 20120608
  Serious: Yes (Other)
  Sender: FDA-Public Use
  Company Number: CHPA2012US004788

PATIENT
  Age: 65 Year
  Sex: Female

DRUGS (1)
  1. EXCEDRIN EXTRA STRENGTH TABLETS [Suspect]
     Indication: ARTHRITIS
     Dosage: 4 DF, QD
     Route: 048
     Dates: end: 20120301

REACTIONS (2)
  - CARDIAC DISORDER [None]
  - INCORRECT DRUG ADMINISTRATION DURATION [None]
